FAERS Safety Report 8515031-X (Version None)
Quarter: 2012Q3

REPORT INFORMATION
  Report Type: 
  Country: None (occurrence: None)
  Receive Date: 20120717
  Receipt Date: 20120709
  Transmission Date: 20120928
  Serious: Yes (Hospitalization)
  Sender: FDA-Public Use
  Company Number: DE-JNJFOC-20120704126

PATIENT
  Age: 57 Year
  Sex: Male
  Weight: 80 kg

DRUGS (7)
  1. REMICADE [Suspect]
     Indication: ANKYLOSING SPONDYLITIS
     Route: 042
     Dates: start: 20120622
  2. NAPROXEN [Concomitant]
     Indication: ANALGESIC THERAPY
     Route: 048
  3. ASPIRIN [Concomitant]
     Indication: CARDIAC FAILURE CONGESTIVE
     Route: 065
  4. ISONIAZID [Concomitant]
     Indication: ANTIBIOTIC PROPHYLAXIS
     Route: 048
  5. TILIDINE/NALOXONE [Concomitant]
     Indication: PAIN
     Dosage: 50 AND 4 MG
     Route: 048
     Dates: start: 20120601
  6. REMICADE [Suspect]
     Route: 042
     Dates: start: 20120706, end: 20120706
  7. NAPROXEN [Concomitant]
     Indication: ANTIINFLAMMATORY THERAPY
     Route: 048

REACTIONS (6)
  - TACHYPNOEA [None]
  - AGITATION [None]
  - TREMOR [None]
  - PALLOR [None]
  - ANXIETY [None]
  - INFUSION RELATED REACTION [None]
